FAERS Safety Report 9881585 (Version 1)
Quarter: 2014Q1

REPORT INFORMATION
  Report Type: Report from Study
  Country: US (occurrence: US)
  Receive Date: 20140207
  Receipt Date: 20140207
  Transmission Date: 20141002
  Serious: Yes (Death)
  Sender: FDA-Public Use
  Company Number: PHEH2014US002619

PATIENT
  Age: 46 Year
  Sex: Male

DRUGS (10)
  1. GLEEVEC [Suspect]
     Indication: SOFT TISSUE CANCER
     Dosage: 400 MG, DAILY
     Route: 048
     Dates: start: 20140102
  2. ALBUTEROL SULFATE [Concomitant]
     Dosage: UNK UKN, UNK
  3. SYNTHROID [Concomitant]
     Dosage: UNK UKN, UNK
  4. DULERA [Concomitant]
     Dosage: UNK UKN, UNK
  5. SINGULAIR [Concomitant]
     Dosage: UNK UKN, UNK
  6. LISINOPRIL [Concomitant]
     Dosage: UNK UKN, UNK
  7. MIRALAX [Concomitant]
     Dosage: UNK UKN, UNK
  8. DOCUSATE SODIUM [Concomitant]
     Dosage: UNK UKN, UNK
  9. MUCINEX [Concomitant]
     Dosage: UNK UKN, UNK
  10. TRAMADOL [Concomitant]
     Dosage: UNK UKN, UNK

REACTIONS (1)
  - Death [Fatal]
